FAERS Safety Report 15675053 (Version 1)
Quarter: 2018Q4

REPORT INFORMATION
  Report Type: Spontaneous
  Country: US (occurrence: US)
  Receive Date: 20181130
  Receipt Date: 20181130
  Transmission Date: 20190205
  Serious: No
  Sender: FDA-Public Use
  Company Number: US-PFIZER INC-2018478108

PATIENT
  Age: 67 Year
  Sex: Female
  Weight: 51.25 kg

DRUGS (4)
  1. CHANTIX [Suspect]
     Active Substance: VARENICLINE TARTRATE
     Indication: SMOKING CESSATION THERAPY
     Dosage: 1 DF, DAILY [1 PILL DAILY]
  2. CHANTIX [Suspect]
     Active Substance: VARENICLINE TARTRATE
     Dosage: 1 MG, 1X/DAY (1 TABLET BY MOUTH IN THE MORNING)
     Route: 048
     Dates: start: 20181030, end: 20181102
  3. CHANTIX [Suspect]
     Active Substance: VARENICLINE TARTRATE
     Dosage: 1 MG, 2X/DAY
     Route: 048
     Dates: start: 201807, end: 20181030
  4. TRIAMTERENE HCTZ [Concomitant]
     Active Substance: HYDROCHLOROTHIAZIDE\TRIAMTERENE
     Indication: HYPERTENSION
     Dosage: UNK, 1X/DAY, [(TRIAMTERENE: 37.5 MG)/( HYDROCHLOROTHIAZIDE: 25MG)], (ONCE DAILY ON MONDAYS,WEDNESDA)
     Route: 048

REACTIONS (3)
  - Product prescribing error [Unknown]
  - Intentional product misuse [Unknown]
  - Weight increased [Not Recovered/Not Resolved]
